FAERS Safety Report 5915424-0 (Version None)
Quarter: 2008Q4

REPORT INFORMATION
  Report Type: 
  Country: None (occurrence: None)
  Receive Date: 20081010
  Receipt Date: 20080929
  Transmission Date: 20090506
  Serious: Yes (Hospitalization, Other)
  Sender: FDA-Public Use
  Company Number: JP-PFIZER INC-2008066587

PATIENT
  Sex: Male
  Weight: 63 kg

DRUGS (15)
  1. VFEND [Suspect]
     Indication: ASPERGILLOSIS
     Route: 042
     Dates: start: 20080723, end: 20080723
  2. VFEND [Suspect]
     Route: 042
     Dates: start: 20080724, end: 20080801
  3. LASIX [Suspect]
     Indication: OEDEMA
     Route: 042
     Dates: start: 20080715
  4. LASIX [Suspect]
     Dosage: DAILY DOSE:240MG
     Route: 042
     Dates: start: 20080722, end: 20080814
  5. DESYREL [Suspect]
     Indication: RESTLESSNESS
     Dosage: TEXT:25-50 MG/DAY
     Route: 048
     Dates: start: 20080727, end: 20080731
  6. DESYREL [Suspect]
     Indication: HALLUCINATION
  7. RISPERDAL [Suspect]
     Indication: RESTLESSNESS
     Dosage: TEXT:1-40MG
     Route: 048
     Dates: start: 20080727, end: 20080731
  8. RISPERDAL [Suspect]
     Indication: HALLUCINATION
  9. ROCEPHIN [Concomitant]
     Indication: PNEUMONIA
     Route: 042
     Dates: start: 20080715, end: 20080730
  10. POTASSIUM CANRENOATE [Concomitant]
     Route: 042
     Dates: start: 20080720, end: 20080721
  11. ALBUMIN (HUMAN) [Concomitant]
     Indication: HYPOALBUMINAEMIA
     Route: 042
  12. VENOGLOBULIN [Concomitant]
     Indication: IMMUNODEFICIENCY
     Route: 042
     Dates: start: 20080722
  13. PREDONINE [Concomitant]
     Route: 048
     Dates: start: 20080601, end: 20080714
  14. UNASYN ORAL TABLET [Concomitant]
     Route: 048
     Dates: end: 20080714
  15. THEO-DUR [Concomitant]
     Route: 048
     Dates: end: 20080717

REACTIONS (5)
  - HALLUCINATION [None]
  - RENAL FAILURE [None]
  - RESTLESSNESS [None]
  - SOMNOLENCE [None]
  - VISION BLURRED [None]
